FAERS Safety Report 8916627 (Version 1)
Quarter: 2012Q4

REPORT INFORMATION
  Report Type: Report from Study
  Country: US (occurrence: US)
  Receive Date: 20121120
  Receipt Date: 20121120
  Transmission Date: 20130627
  Serious: Yes (Hospitalization)
  Sender: FDA-Public Use
  Company Number: US-009507513-1211USA002501

PATIENT
  Age: 3 Year
  Sex: Female

DRUGS (38)
  1. DEXAMETHASONE [Suspect]
     Indication: ACUTE LYMPHOCYTIC LEUKAEMIA
     Dosage: 3.5 mg, bid
     Route: 048
     Dates: start: 20120416, end: 20120910
  2. DEXAMETHASONE [Suspect]
     Dosage: 3.5 mg, bid
     Dates: start: 20120416, end: 20120429
  3. DASATINIB [Suspect]
     Indication: ACUTE LYMPHOCYTIC LEUKAEMIA
     Dosage: 45 mg, qd
     Route: 048
     Dates: start: 20120430
  4. IFOSFAMIDE [Suspect]
     Dosage: 1120 mg, UNK
     Route: 042
     Dates: start: 20120815, end: 20120817
  5. ETOPOSIDE [Suspect]
     Indication: ACUTE LYMPHOCYTIC LEUKAEMIA
     Dosage: 140 mg, UNK
     Route: 042
     Dates: start: 20120907
  6. DAUNORUBICIN HYDROCHLORIDE [Suspect]
     Indication: ACUTE LYMPHOCYTIC LEUKAEMIA
     Dosage: 18 mg, UNK
     Route: 042
     Dates: start: 20120818, end: 20120818
  7. DAUNORUBICIN HYDROCHLORIDE [Suspect]
     Dosage: 18 mg, qw
     Route: 042
     Dates: start: 20120416, end: 20120430
  8. METHOTREXATE [Suspect]
     Indication: ACUTE LYMPHOCYTIC LEUKAEMIA
     Dosage: 12 mg, UNK
     Route: 025
     Dates: start: 20120814, end: 20120814
  9. METHOTREXATE [Suspect]
     Dosage: 12 mg, Once
     Route: 037
     Dates: start: 20120423
  10. CYTARABINE [Suspect]
     Indication: ACUTE LYMPHOCYTIC LEUKAEMIA
     Dosage: 70 mg, UNK
     Route: 025
     Dates: start: 20120814
  11. CYTARABINE [Suspect]
     Dosage: 70 mg, Once
     Route: 037
     Dates: start: 20120416, end: 20120416
  12. ASPARAGINASE (AS DRUG) [Suspect]
     Indication: ACUTE LYMPHOCYTIC LEUKAEMIA
     Dosage: 1 DF, UNK
     Route: 042
     Dates: start: 20120719, end: 20120819
  13. VINCRISTINE SULFATE [Suspect]
     Dosage: 1.1 mg, UNK
     Route: 042
     Dates: start: 20120815
  14. VINCRISTINE SULFATE [Suspect]
     Dosage: 1.1 mg, qw
     Route: 042
     Dates: start: 20120416, end: 20120430
  15. PEGASPARGASE [Suspect]
     Dosage: 1775 IU, UNK
     Dates: start: 20120820, end: 20120820
  16. PEGASPARGASE [Suspect]
     Dosage: 1775 IU, Once
     Route: 042
     Dates: start: 20120419, end: 20120419
  17. HYDROCORTISONE [Suspect]
     Dosage: UNK
     Route: 025
     Dates: start: 20120814
  18. ZANTAC [Concomitant]
     Dosage: UNK
     Dates: start: 20120416, end: 20120820
  19. ZOFRAN [Concomitant]
     Dosage: UNK
     Dates: start: 20120430, end: 20120820
  20. BENADRYL [Concomitant]
     Dosage: UNK
     Dates: start: 20120724, end: 20120819
  21. FILGRASTIM [Concomitant]
     Dosage: UNK
     Dates: start: 20120730, end: 20120827
  22. LEUCOVORIN [Concomitant]
     Dosage: UNK
     Dates: start: 20120726, end: 20120816
  23. ATIVAN [Concomitant]
     Dosage: UNK
     Dates: start: 20120724, end: 20120819
  24. NYSTATIN [Concomitant]
     Dosage: UNK
     Dates: start: 20120729, end: 20120830
  25. PREDNISOLONE [Concomitant]
     Dosage: UNK
     Dates: start: 20120728, end: 20120802
  26. ZANTAC [Concomitant]
     Dosage: UNK
     Dates: start: 20120815
  27. SEPTRA [Concomitant]
     Dosage: UNK
     Dates: start: 201204
  28. KETAMINE HYDROCHLORIDE [Concomitant]
     Dosage: UNK
     Dates: start: 20120724, end: 20120814
  29. VERSED [Concomitant]
     Dosage: UNK
     Dates: start: 20120814, end: 20120814
  30. MORPHINE [Concomitant]
     Dosage: UNK
     Dates: start: 20120820, end: 20120829
  31. MIRALAX [Concomitant]
     Dosage: UNK
     Dates: start: 20120416, end: 20120829
  32. MESNA [Concomitant]
     Dosage: UNK
     Dates: start: 20120815, end: 20120817
  33. DIPHENHYDRAMINE HYDROCHLORIDE [Concomitant]
     Dosage: UNK
     Dates: start: 20120814, end: 20120819
  34. LORAZEPAM [Concomitant]
     Dosage: UNK
     Dates: start: 20120814, end: 20120819
  35. SODIUM BICARBONATE [Concomitant]
     Dosage: UNK
     Dates: start: 20120814, end: 20120829
  36. CEFEPIME HYDROCHLORIDE [Concomitant]
     Dosage: UNK
     Dates: start: 20120413, end: 20120420
  37. NYSTATIN [Concomitant]
     Dosage: UNK
     Dates: start: 20120422
  38. FUROSEMIDE [Concomitant]
     Dosage: UNK
     Dates: start: 20120427, end: 20120429

REACTIONS (6)
  - Febrile neutropenia [Recovered/Resolved]
  - Hypersensitivity [Recovered/Resolved]
  - Mucosal inflammation [Unknown]
  - Neutropenia [Recovered/Resolved]
  - Device related infection [Recovered/Resolved]
  - Febrile neutropenia [Recovered/Resolved]
